FAERS Safety Report 4342617-9 (Version None)
Quarter: 2004Q2

REPORT INFORMATION
  Report Type: 
  Country: None (occurrence: None)
  Receive Date: 20040421
  Receipt Date: 20040409
  Transmission Date: 20050107
  Serious: Yes (Death, Hospitalization, Other)
  Sender: FDA-Public Use
  Company Number: 200412793US

PATIENT
  Sex: Male
  Weight: 63 kg

DRUGS (29)
  1. ARAVA [Suspect]
     Indication: RHEUMATOID ARTHRITIS
     Dates: start: 19991115, end: 20040429
  2. METHOTREXATE [Concomitant]
  3. PEPCID [Concomitant]
  4. PERIDEX [Concomitant]
     Dosage: DOSE: UNK
  5. ALBUTEROL [Concomitant]
     Dosage: DOSE: UNK
  6. ATROVENT [Concomitant]
     Dosage: DOSE: UNK
  7. FERROUS SULFATE TAB [Concomitant]
  8. METAMUCIL-2 [Concomitant]
     Dosage: DOSE: UNK
  9. MYADEC [Concomitant]
     Dosage: DOSE: UNK
  10. FOLIC ACID [Concomitant]
  11. LANOXIN [Concomitant]
  12. POTASSIUM [Concomitant]
  13. QUINAPRIL HCL [Concomitant]
  14. BETAPACE [Concomitant]
  15. EPOGEN [Concomitant]
     Dosage: DOSE: UNK
  16. PREDNISONE [Concomitant]
  17. AUGMENTIN [Concomitant]
     Dosage: DOSE: UNK
  18. BIAXIN [Concomitant]
  19. ORUVAIL [Concomitant]
  20. ENALAPRIL [Concomitant]
  21. AMIODARONE HCL [Concomitant]
     Dosage: DOSE: UNK
  22. NORVASC [Concomitant]
  23. ZOLOFT [Concomitant]
  24. PROMETHAZINE [Concomitant]
     Dosage: DOSE: UNK
  25. LEVAQUIN [Concomitant]
  26. ZITHROMAX [Concomitant]
  27. CIPRO [Concomitant]
     Dosage: DOSE: UNK
  28. CLINDAMYCIN HCL [Concomitant]
     Dosage: DOSE: UNK
  29. LASIX [Concomitant]
     Dosage: DOSE: UNK

REACTIONS (23)
  - ABDOMINAL PAIN [None]
  - ASTHENIA [None]
  - BRONCHOPLEURAL FISTULA [None]
  - CONFUSIONAL STATE [None]
  - EMPHYSEMA [None]
  - EMPYEMA [None]
  - FUNGAL INFECTION [None]
  - GALLBLADDER DISORDER [None]
  - HEPATIC FAILURE [None]
  - HYPERTENSION [None]
  - IMPAIRED SELF-CARE [None]
  - JAUNDICE [None]
  - MOBILITY DECREASED [None]
  - MYOCARDIAL INFARCTION [None]
  - NEPHRITIS INTERSTITIAL [None]
  - PANCYTOPENIA [None]
  - PLEURAL EFFUSION [None]
  - PNEUMOTHORAX [None]
  - RENAL FAILURE [None]
  - SINUS TACHYCARDIA [None]
  - STAPHYLOCOCCAL SEPSIS [None]
  - SUBCUTANEOUS EMPHYSEMA [None]
  - VENTRICULAR DYSFUNCTION [None]
